FAERS Safety Report 7063435-7 (Version None)
Quarter: 2010Q4

REPORT INFORMATION
  Report Type: 
  Country: None (occurrence: None)
  Receive Date: 20101026
  Receipt Date: 20100202
  Transmission Date: 20110411
  Serious: No
  Sender: FDA-Public Use
  Company Number: US-ABBOTT-10P-163-0622970-00

PATIENT
  Sex: Female
  Weight: 65.83 kg

DRUGS (4)
  1. LUPRON DEPOT [Suspect]
     Indication: ENDOMETRIOSIS
     Dates: start: 20100115
  2. NORETHINDRONE ACETATE [Concomitant]
     Indication: HOT FLUSH
     Dates: start: 20100115
  3. NORETHINDRONE ACETATE [Concomitant]
     Indication: PROPHYLAXIS
  4. MELATONIN [Concomitant]
     Indication: INSOMNIA

REACTIONS (4)
  - ABASIA [None]
  - ARTHRALGIA [None]
  - PAIN IN EXTREMITY [None]
  - TENDON INJURY [None]
